FAERS Safety Report 4817125-9 (Version None)
Quarter: 2005Q4

REPORT INFORMATION
  Report Type: 
  Country: None (occurrence: None)
  Receive Date: 20051018
  Receipt Date: 20050818
  Transmission Date: 20060501
  Serious: Yes (Other)
  Sender: FDA-Public Use
  Company Number: PHEH2005US09255

PATIENT
  Age: 41 Year
  Sex: Female

DRUGS (2)
  1. ZOMETA [Suspect]
     Dosage: 4 MG, QMO, INFUSION
     Route: 011
  2. CHEMOTHERAPEUTICS FOR TOPICAL USE (NO INGREDIENTS/SUBSTANCES) [Concomitant]

REACTIONS (5)
  - CHILLS [None]
  - ORAL INFECTION [None]
  - OSTEONECROSIS [None]
  - PYREXIA [None]
  - SWELLING FACE [None]
